FAERS Safety Report 8140496-5 (Version None)
Quarter: 2012Q1

REPORT INFORMATION
  Report Type: 
  Country: None (occurrence: None)
  Receive Date: 20120216
  Receipt Date: 20120213
  Transmission Date: 20120608
  Serious: Yes (Hospitalization)
  Sender: FDA-Public Use
  Company Number: FR-PFIZER INC-2012037803

PATIENT
  Age: 49 Year
  Sex: Male

DRUGS (1)
  1. IBUPROFEN [Suspect]
     Indication: RHINITIS
     Dosage: 3 DOSAGE FORMS DAILY
     Route: 048
     Dates: end: 20100521

REACTIONS (4)
  - CEREBROVASCULAR ACCIDENT [None]
  - HEADACHE [None]
  - EXECUTIVE DYSFUNCTION [None]
  - APHASIA [None]
